FAERS Safety Report 4404599-0 (Version None)
Quarter: 2004Q3

REPORT INFORMATION
  Report Type: 
  Country: None (occurrence: None)
  Receive Date: 20040720
  Receipt Date: 20040712
  Transmission Date: 20050211
  Serious: Yes (Other)
  Sender: FDA-Public Use
  Company Number: K200401031

PATIENT
  Sex: Female

DRUGS (5)
  1. ALTACE [Suspect]
     Indication: CARDIAC FAILURE
     Dosage: 5 MG, QD, ORAL
     Route: 048
     Dates: start: 20040401, end: 20040526
  2. SPIRONOLACTONE [Concomitant]
  3. FUROSEMIDE [Concomitant]
  4. BISOPROLOL FUMARATE [Concomitant]
  5. WARFANT (WARFARIN SODIUM CLATHRATE) [Concomitant]

REACTIONS (1)
  - HEPATITIS CHOLESTATIC [None]
